FAERS Safety Report 14876264 (Version 2)
Quarter: 2018Q2

REPORT INFORMATION
  Report Type: Spontaneous
  Country: US (occurrence: US)
  Receive Date: 20180510
  Receipt Date: 20180515
  Transmission Date: 20180711
  Serious: Yes (Hospitalization, Other)
  Sender: FDA-Public Use
  Company Number: US-VALIDUS PHARMACEUTICALS LLC-US-2018VAL000745

PATIENT
  Age: 10 Year
  Sex: Male

DRUGS (2)
  1. COLCHICINE. [Suspect]
     Active Substance: COLCHICINE
     Indication: PRODUCT USED FOR UNKNOWN INDICATION
     Dosage: UNK
     Route: 065
  2. FUROSEMIDE. [Suspect]
     Active Substance: FUROSEMIDE
     Indication: PRODUCT USED FOR UNKNOWN INDICATION
     Dosage: 10 MG/KG, UNK
     Route: 065

REACTIONS (9)
  - Toxicity to various agents [Recovered/Resolved]
  - Dizziness [Recovered/Resolved]
  - Atrioventricular block second degree [Recovered/Resolved]
  - Electrocardiogram PR prolongation [Recovered/Resolved]
  - Vomiting [Recovered/Resolved]
  - Abdominal pain [Recovered/Resolved]
  - Sinus bradycardia [Recovered/Resolved]
  - Sinus arrhythmia [Recovered/Resolved]
  - Hypokalaemia [Recovered/Resolved]
